FAERS Safety Report 7901617-X (Version None)
Quarter: 2011Q4

REPORT INFORMATION
  Report Type: 
  Country: None (occurrence: None)
  Receive Date: 20111108
  Receipt Date: 20111104
  Transmission Date: 20120403
  Serious: Yes (Hospitalization)
  Sender: FDA-Public Use
  Company Number: US-VERTEX PHARMACEUTICALS INC.-AE-2011-003096

PATIENT
  Sex: Male

DRUGS (10)
  1. OMEPRAZOLE [Concomitant]
     Route: 048
  2. LISINOPRIL [Concomitant]
     Route: 048
  3. RIBAVIRIN [Concomitant]
     Indication: HEPATITIS C
     Route: 048
     Dates: start: 20111003
  4. SPIRONOLACTONE [Concomitant]
     Route: 048
  5. INCIVEK [Suspect]
     Indication: HEPATITIS C
     Route: 048
     Dates: start: 20111003
  6. ASPIRIN [Concomitant]
     Route: 048
  7. PEGINTERFERON [Concomitant]
     Indication: HEPATITIS C
     Route: 058
     Dates: start: 20111003
  8. PRAVASTATIN [Concomitant]
     Route: 048
  9. METOPROLOL [Concomitant]
     Route: 048
  10. LITHIUM [Concomitant]
     Route: 048

REACTIONS (6)
  - RENAL FAILURE [None]
  - ANAL PRURITUS [None]
  - DIARRHOEA [None]
  - DEHYDRATION [None]
  - MENTAL STATUS CHANGES [None]
  - TOXICITY TO VARIOUS AGENTS [None]
